FAERS Safety Report 8949675 (Version 1)
Quarter: 2012Q4

REPORT INFORMATION
  Report Type: 
  Country: LB (occurrence: LB)
  Receive Date: 20121206
  Receipt Date: 20121206
  Transmission Date: 20130627
  Serious: Yes (Life-Threatening, Hospitalization)
  Sender: FDA-Public Use
  Company Number: LB-SANOFI-AVENTIS-2012SA088421

PATIENT
  Age: 64 Year
  Sex: Female

DRUGS (3)
  1. LANTUS SOLOSTAR [Suspect]
     Indication: DIABETIC
     Dosage: Dose:10 unit(s)
     Route: 058
     Dates: start: 201211
  2. SOLOSTAR [Suspect]
     Indication: DEVICE THERAPY
     Dates: start: 201211
  3. GLUCOVANCE [Concomitant]
     Indication: DIABETIC
     Route: 048

REACTIONS (2)
  - Neoplasm malignant [Unknown]
  - Generalised oedema [Unknown]
